FAERS Safety Report 6255849-X (Version None)
Quarter: 2009Q3

REPORT INFORMATION
  Report Type: 
  Country: None (occurrence: None)
  Receive Date: 20090703
  Receipt Date: 20090623
  Transmission Date: 20100115
  Serious: Yes (Other)
  Sender: FDA-Public Use
  Company Number: US-PFIZER INC-2009231048

PATIENT
  Age: 51 Year
  Sex: Male
  Weight: 77.36 kg

DRUGS (4)
  1. BLINDED *NO SUBJECT DRUG [Suspect]
     Indication: RENAL CELL CARCINOMA
     Dosage: SORABENIB OR PLACEBO: 400 MG PO BID; SUNITINIB OR PLACEBO: 50 MG PO QD OF WEEKS 1-4
     Route: 048
     Dates: start: 20090203
  2. BLINDED *PLACEBO [Suspect]
     Indication: RENAL CELL CARCINOMA
     Dosage: SORABENIB OR PLACEBO: 400 MG PO BID; SUNITINIB OR PLACEBO: 50 MG PO QD OF WEEKS 1-4
     Route: 048
     Dates: start: 20090203
  3. BLINDED *SORAFENIB [Suspect]
     Indication: RENAL CELL CARCINOMA
     Dosage: SORABENIB OR PLACEBO: 400 MG PO BID; SUNITINIB OR PLACEBO: 50 MG PO QD OF WEEKS 1-4
     Route: 048
     Dates: start: 20090203
  4. BLINDED SUNITINIB MALATE [Suspect]
     Indication: RENAL CELL CARCINOMA
     Dosage: SORABENIB OR PLACEBO: 400 MG PO BID; SUNITINIB OR PLACEBO: 50 MG PO QD OF WEEKS 1-4
     Route: 048
     Dates: start: 20090203

REACTIONS (1)
  - MEMORY IMPAIRMENT [None]
